FAERS Safety Report 12839061 (Version 1)
Quarter: 2016Q4

REPORT INFORMATION
  Report Type: Spontaneous
  Country: US (occurrence: US)
  Receive Date: 20161010
  Receipt Date: 20161010
  Transmission Date: 20170207
  Serious: No
  Sender: FDA-Public Use
  Company Number: None

PATIENT
  Age: 52 Year
  Sex: Female
  Weight: 69.75 kg

DRUGS (2)
  1. ASPIRIN. [Suspect]
     Active Substance: ASPIRIN
     Route: 048
     Dates: start: 20160929, end: 20160929
  2. ISOVUE 370 [Suspect]
     Active Substance: IOPAMIDOL
     Dosage: OTHER FREQUENCY:ONCE TIME DOSE;?INTRAVENOUS (NOT OTHERWISE SPECIFIED)
     Route: 042
     Dates: start: 20160929, end: 20160929

REACTIONS (4)
  - Nausea [None]
  - Dyspnoea [None]
  - Chest pain [None]
  - Vomiting [None]

NARRATIVE: CASE EVENT DATE: 20160929
